FAERS Safety Report 7824917-0 (Version None)
Quarter: 2011Q4

REPORT INFORMATION
  Report Type: 
  Country: None (occurrence: None)
  Receive Date: 20111019
  Receipt Date: 20110318
  Transmission Date: 20120403
  Serious: No
  Sender: FDA-Public Use
  Company Number: US-BRISTOL-MYERS SQUIBB COMPANY-15565518

PATIENT
  Age: 65 Year
  Sex: Female
  Weight: 68 kg

DRUGS (1)
  1. AVALIDE [Suspect]
     Dosage: 1 DF: 300/25MG

REACTIONS (2)
  - BLADDER SPASM [None]
  - HYPERTENSION [None]
